FAERS Safety Report 19270378 (Version 9)
Quarter: 2021Q3

REPORT INFORMATION
  Report Type: Spontaneous
  Country: GB (occurrence: GB)
  Receive Date: 20210518
  Receipt Date: 20210927
  Transmission Date: 20211014
  Serious: Yes (Other)
  Sender: FDA-Public Use
  Company Number: GB-MYLANLABS-2021M1028477

PATIENT
  Age: 73 Year
  Sex: Female
  Weight: 50.2 kg

DRUGS (63)
  1. SERTRALINE [Suspect]
     Active Substance: SERTRALINE HYDROCHLORIDE
     Indication: PRODUCT USED FOR UNKNOWN INDICATION
     Dosage: 50 MILLIGRAM, ONCE A DAY (EVERY MORNING)
     Route: 065
  2. ALLOPURINOL. [Suspect]
     Active Substance: ALLOPURINOL
     Dosage: 300 MILLIGRAM, QD
  3. MELPHALAN. [Suspect]
     Active Substance: MELPHALAN
     Indication: PLASMA CELL LEUKAEMIA
     Dosage: 1 CYCLE
     Route: 065
  4. MELPHALAN. [Suspect]
     Active Substance: MELPHALAN
     Dosage: 14 MILLIGRAM, ONCE A DAY
     Route: 065
     Dates: start: 20171103, end: 20171103
  5. MELPHALAN. [Suspect]
     Active Substance: MELPHALAN
     Dosage: UNK UNK, QD
     Route: 065
     Dates: start: 20171110, end: 20171110
  6. PREDNISONE. [Suspect]
     Active Substance: PREDNISONE
     Dosage: 70 MILLIGRAM, ONCE A DAY
     Route: 065
  7. VELCADE [Suspect]
     Active Substance: BORTEZOMIB
     Dosage: 1.3 MILLIGRAM/SQ. METER, CYCLE (1 CYCLE)
     Route: 058
     Dates: start: 20171106, end: 20171106
  8. BENDROFLUMETHIAZIDE [Suspect]
     Active Substance: BENDROFLUMETHIAZIDE
     Dosage: 3 MILLIGRAM, QD
     Route: 065
  9. OMEPRAZOLE. [Concomitant]
     Active Substance: OMEPRAZOLE
     Indication: PRODUCT USED FOR UNKNOWN INDICATION
     Dosage: 10 MILLIGRAM, PRN
  10. OMEPRAZOLE. [Suspect]
     Active Substance: OMEPRAZOLE
     Dosage: 20 MILLIGRAM, ONCE A DAY
     Route: 048
  11. SODIUM CHLORIDE. [Suspect]
     Active Substance: SODIUM CHLORIDE
     Dosage: UNK
     Route: 041
     Dates: start: 20171107, end: 201711
  12. VELCADE [Suspect]
     Active Substance: BORTEZOMIB
     Dosage: 1.3 MILLIGRAM/SQ. METER, CYCLE (1 CYCLE)
     Route: 058
     Dates: start: 20171110, end: 20171110
  13. BENDROFLUMETHIAZIDE [Suspect]
     Active Substance: BENDROFLUMETHIAZIDE
     Dosage: 2 MG, QD, 5 DAYS
     Dates: start: 20171110, end: 20171114
  14. FENTANYL CITRATE. [Suspect]
     Active Substance: FENTANYL CITRATE
     Dosage: 12 MICROGRAM
     Route: 055
     Dates: start: 20171108
  15. ALLOPURINOL. [Suspect]
     Active Substance: ALLOPURINOL
     Indication: PRODUCT USED FOR UNKNOWN INDICATION
     Dosage: 30 MILLIGRAM, DAILY
     Route: 065
     Dates: start: 20171104, end: 20171120
  16. MELPHALAN. [Suspect]
     Active Substance: MELPHALAN
     Dosage: 14 MILLIGRAM, CYCLE
     Route: 065
  17. MELPHALAN. [Suspect]
     Active Substance: MELPHALAN
     Dosage: 14 MILLIGRAM, TID
     Route: 065
     Dates: start: 20171103, end: 20171106
  18. MELPHALAN. [Suspect]
     Active Substance: MELPHALAN
     Dosage: UNK
     Route: 065
     Dates: start: 201711, end: 20171107
  19. PREDNISONE. [Suspect]
     Active Substance: PREDNISONE
     Indication: PLASMA CELL LEUKAEMIA
     Dosage: 70 MILLIGRAM, ONCE A DAY
     Route: 065
     Dates: start: 20171103, end: 20171103
  20. VELCADE [Suspect]
     Active Substance: BORTEZOMIB
     Dosage: 20 MILLIGRAM, QD
     Route: 065
     Dates: start: 20171102, end: 20171106
  21. VELCADE [Suspect]
     Active Substance: BORTEZOMIB
     Dosage: 1.8 MILLIGRAM
     Route: 058
  22. VELCADE [Suspect]
     Active Substance: BORTEZOMIB
     Dosage: 2 MG/M2
     Route: 058
     Dates: start: 20171107, end: 201711
  23. BENDROFLUMETHIAZIDE [Suspect]
     Active Substance: BENDROFLUMETHIAZIDE
     Indication: PRODUCT USED FOR UNKNOWN INDICATION
     Dosage: 2.5 MILLIGRAM, ONCE A DAY
     Route: 065
  24. FENTANYL. [Suspect]
     Active Substance: FENTANYL
     Indication: PRODUCT USED FOR UNKNOWN INDICATION
     Dosage: 12 MICROGRAM, QH
     Route: 062
     Dates: start: 20171108
  25. RAMIPRIL. [Suspect]
     Active Substance: RAMIPRIL
     Indication: PRODUCT USED FOR UNKNOWN INDICATION
     Dosage: 10 MILLIGRAM, ONCE A DAY, DOSAGE FORM: UNSPECIFIED, EVERY MORNING
     Route: 048
  26. SODIUM CHLORIDE. [Suspect]
     Active Substance: SODIUM CHLORIDE
     Dosage: UNK
     Route: 042
     Dates: start: 20171110, end: 20171114
  27. PREDNISONE. [Suspect]
     Active Substance: PREDNISONE
     Dosage: 1 CYCLE
     Route: 065
  28. VELCADE [Suspect]
     Active Substance: BORTEZOMIB
     Dosage: 1.8 MILLIGRAM
     Route: 065
  29. VELCADE [Suspect]
     Active Substance: BORTEZOMIB
     Dosage: 1.3 MILLIGRAM/SQ. METER, CYCLE (1 CYCLE)
     Route: 058
  30. PREDNISONE. [Suspect]
     Active Substance: PREDNISONE
     Dosage: 70 MILLIGRAM, QD, 1 CYCLE
     Route: 065
     Dates: start: 20171106, end: 20171106
  31. VELCADE [Suspect]
     Active Substance: BORTEZOMIB
     Dosage: 2 MG/M2
     Route: 058
     Dates: start: 20171103, end: 20171103
  32. BENDROFLUMETHIAZIDE [Suspect]
     Active Substance: BENDROFLUMETHIAZIDE
     Dosage: 10 MILLIGRAM, QD
     Route: 065
  33. FENTANYL CITRATE. [Suspect]
     Active Substance: FENTANYL CITRATE
     Indication: PRODUCT USED FOR UNKNOWN INDICATION
     Dosage: 12 MICROGRAM
     Route: 055
  34. DUROGESIC [Suspect]
     Active Substance: FENTANYL
     Indication: PRODUCT USED FOR UNKNOWN INDICATION
     Dosage: UNK, IN 1 HOUR
     Route: 062
     Dates: start: 20171108
  35. SODIUM CHLORIDE. [Suspect]
     Active Substance: SODIUM CHLORIDE
     Dosage: 1 CYCLE
     Route: 065
     Dates: start: 20171110, end: 20171110
  36. DEXAMETHASONE. [Suspect]
     Active Substance: DEXAMETHASONE
     Indication: PLASMA CELL LEUKAEMIA
     Dosage: 20 MILLIGRAM, QD
  37. MELPHALAN. [Suspect]
     Active Substance: MELPHALAN
     Dosage: 14 MILLIGRAM, DAILY
     Dates: start: 20171107, end: 20171110
  38. VELCADE [Suspect]
     Active Substance: BORTEZOMIB
     Indication: PLASMA CELL LEUKAEMIA
     Dosage: 1.3 MILLIGRAM/SQ. METER, CYCLE (1 CYCLE)
     Route: 058
     Dates: start: 20171103, end: 20171103
  39. VELCADE [Suspect]
     Active Substance: BORTEZOMIB
     Dosage: LYOPHILIZED POWDER
     Route: 058
  40. BENDROFLUMETHIAZIDE [Suspect]
     Active Substance: BENDROFLUMETHIAZIDE
     Dosage: 2 MILLIGRAM, QD
     Dates: start: 20171103, end: 20171103
  41. BENDROFLUMETHIAZIDE [Concomitant]
     Active Substance: BENDROFLUMETHIAZIDE
     Indication: PRODUCT USED FOR UNKNOWN INDICATION
     Dosage: 2.5 MILLIGRAM, ONCE A DAY
  42. METOCLOPRAMIDE. [Concomitant]
     Active Substance: METOCLOPRAMIDE
     Indication: PRODUCT USED FOR UNKNOWN INDICATION
     Dosage: 20 MILLIGRAM, QD
  43. OMEPRAZOLE. [Suspect]
     Active Substance: OMEPRAZOLE
     Indication: PRODUCT USED FOR UNKNOWN INDICATION
     Dosage: 20 MILLIGRAM, ONCE A DAY, UNSPECIFIED, EVERY MORNING
     Route: 048
  44. METOCLOPRAMIDE. [Suspect]
     Active Substance: METOCLOPRAMIDE
     Indication: PRODUCT USED FOR UNKNOWN INDICATION
     Dosage: 10 MILLIGRAM, AS NECESSARY
     Route: 065
  45. ALLOPURINOL. [Suspect]
     Active Substance: ALLOPURINOL
     Dosage: 300 MILLIGRAM, QD
     Route: 065
     Dates: start: 20171120
  46. ALLOPURINOL. [Suspect]
     Active Substance: ALLOPURINOL
     Dosage: 30 MILLIGRAM, QD
     Route: 065
     Dates: start: 20171120
  47. DEXAMETHASONE. [Suspect]
     Active Substance: DEXAMETHASONE
     Dosage: 20 MILLIGRAM, DAILY
     Route: 065
     Dates: start: 20171102, end: 20171106
  48. DEXAMETHASONE. [Suspect]
     Active Substance: DEXAMETHASONE
     Dosage: 100 MILLIGRAM
  49. MELPHALAN. [Suspect]
     Active Substance: MELPHALAN
     Dosage: UNK
     Route: 065
     Dates: start: 20171106, end: 20171106
  50. MELPHALAN. [Suspect]
     Active Substance: MELPHALAN
     Dosage: UNK
     Route: 065
     Dates: start: 20171110, end: 20171114
  51. PREDNISONE. [Suspect]
     Active Substance: PREDNISONE
     Dosage: 70 MILLIGRAM, 1 CYCLE
     Route: 065
  52. VELCADE [Suspect]
     Active Substance: BORTEZOMIB
     Dosage: 1.8 MILLIGRAM
     Route: 058
     Dates: start: 20171107, end: 201711
  53. VELCADE [Suspect]
     Active Substance: BORTEZOMIB
     Dosage: 1.8 MILLIGRAM
     Route: 058
     Dates: start: 20171103, end: 20171103
  54. BENDROFLUMETHIAZIDE [Suspect]
     Active Substance: BENDROFLUMETHIAZIDE
     Dosage: UNK (1.8 MG/M2 Q_CYCLE / 1.3 MG/M2 )
  55. SERTRALINE [Suspect]
     Active Substance: SERTRALINE HYDROCHLORIDE
     Indication: PRODUCT USED FOR UNKNOWN INDICATION
     Dosage: UNK
     Route: 041
     Dates: start: 20171103, end: 20171106
  56. RAMIPRIL. [Concomitant]
     Active Substance: RAMIPRIL
     Indication: PRODUCT USED FOR UNKNOWN INDICATION
     Dosage: 10 MILLIGRAM, ONCE A DAY, DOSAGE FORM: UNSPECIFIED, EVERY MORNING
  57. SODIUM CHLORIDE. [Suspect]
     Active Substance: SODIUM CHLORIDE
     Indication: MEDICATION DILUTION
     Dosage: 1 CYCLE
     Route: 041
     Dates: start: 20171103, end: 20171103
  58. SODIUM CHLORIDE. [Suspect]
     Active Substance: SODIUM CHLORIDE
     Dosage: 1 CYCLE
     Route: 041
     Dates: start: 20171106, end: 20171106
  59. ALLOPURINOL. [Suspect]
     Active Substance: ALLOPURINOL
     Dosage: 300 MILLIGRAM, DAILY
     Route: 065
     Dates: start: 20171104, end: 20171120
  60. ALLOPURINOL. [Suspect]
     Active Substance: ALLOPURINOL
     Dosage: UNK
     Route: 065
  61. VELCADE [Suspect]
     Active Substance: BORTEZOMIB
     Dosage: 1.8 MILLIGRAM
     Route: 058
     Dates: start: 20171110, end: 20171114
  62. VELCADE [Suspect]
     Active Substance: BORTEZOMIB
     Dosage: 2 MG/M2,LYOPHILIZED POWDER
     Route: 058
     Dates: start: 20171110, end: 20171114
  63. BENDROFLUMETHIAZIDE [Suspect]
     Active Substance: BENDROFLUMETHIAZIDE
     Dosage: 2 MILLIGRAM, QD
     Dates: start: 20171107, end: 201711

REACTIONS (13)
  - Confusional state [Not Recovered/Not Resolved]
  - Off label use [Unknown]
  - Abnormal behaviour [Not Recovered/Not Resolved]
  - Agitation [Not Recovered/Not Resolved]
  - Drug abuse [Unknown]
  - Intentional product misuse [Unknown]
  - Paranoia [Not Recovered/Not Resolved]
  - Medication error [Unknown]
  - Disturbance in social behaviour [Recovered/Resolved]
  - Disorientation [Recovered/Resolved]
  - Product use in unapproved indication [Unknown]
  - Hallucination [Recovered/Resolved]
  - Emotional distress [Not Recovered/Not Resolved]

NARRATIVE: CASE EVENT DATE: 20171107
